FAERS Safety Report 24217719 (Version 1)
Quarter: 2024Q3

REPORT INFORMATION
  Report Type: Spontaneous
  Country: FR (occurrence: FR)
  Receive Date: 20240816
  Receipt Date: 20240816
  Transmission Date: 20241017
  Serious: Yes (Hospitalization)
  Sender: BAYER
  Company Number: None

PATIENT
  Age: 64 Year
  Sex: Female
  Weight: 58 kg

DRUGS (3)
  1. ULTRAVIST [Suspect]
     Active Substance: IOPROMIDE
     Indication: Periarthritis
     Dosage: 1 DF, ONCE
     Route: 042
     Dates: start: 20240620, end: 20240620
  2. XYLOCAINE [Suspect]
     Active Substance: LIDOCAINE HYDROCHLORIDE\LIDOCAINE HYDROCHLORIDE ANHYDROUS
     Indication: Periarthritis
     Route: 051
     Dates: start: 20240620, end: 20240620
  3. KENACORT [Suspect]
     Active Substance: TRIAMCINOLONE
     Indication: Periarthritis
     Dosage: UNK
     Route: 014
     Dates: start: 20240620, end: 20240620

REACTIONS (4)
  - Disturbance in attention [Recovered/Resolved]
  - Loss of consciousness [Recovered/Resolved]
  - Malaise [Recovered/Resolved]
  - Wrong technique in product usage process [Recovered/Resolved]

NARRATIVE: CASE EVENT DATE: 20240620
